FAERS Safety Report 7609586-7 (Version None)
Quarter: 2011Q3

REPORT INFORMATION
  Report Type: 
  Country: None (occurrence: None)
  Receive Date: 20110714
  Receipt Date: 20110704
  Transmission Date: 20111222
  Serious: Yes (Hospitalization)
  Sender: FDA-Public Use
  Company Number: NL-MEDIMMUNE-MEDI-0012966

PATIENT
  Sex: Male
  Weight: 4.145 kg

DRUGS (6)
  1. NYSTATIN [Concomitant]
     Indication: CANDIDIASIS
  2. SYNAGIS [Suspect]
     Route: 030
     Dates: start: 20110111, end: 20110307
  3. ANTIBIOTICS [Concomitant]
  4. MICROLAX [Concomitant]
  5. MICONAZOLE [Concomitant]
  6. LACTULOSE [Concomitant]
     Dates: start: 20110323

REACTIONS (11)
  - ADENOVIRUS INFECTION [None]
  - DYSPNOEA [None]
  - PYREXIA [None]
  - COUGH [None]
  - PNEUMONIA [None]
  - TACHYCARDIA [None]
  - STRABISMUS [None]
  - INFANTILE SPITTING UP [None]
  - CANDIDIASIS [None]
  - USE OF ACCESSORY RESPIRATORY MUSCLES [None]
  - INTERTRIGO [None]
